FAERS Safety Report 8347872-6 (Version None)
Quarter: 2012Q2

REPORT INFORMATION
  Report Type: 
  Country: None (occurrence: None)
  Receive Date: 20120509
  Receipt Date: 20120426
  Transmission Date: 20120825
  Serious: Yes (Hospitalization, Other)
  Sender: FDA-Public Use
  Company Number: US-ELI_LILLY_AND_COMPANY-US201009003127

PATIENT
  Sex: Female

DRUGS (25)
  1. FORTEO [Suspect]
     Dosage: 20 UG, QD
     Route: 058
  2. PREDNISONE [Concomitant]
     Dosage: 9 MG, UNKNOWN
     Route: 065
  3. PREDNISONE [Concomitant]
     Dosage: 40 MG, UNKNOWN
     Route: 065
  4. CALCIUM                                 /N/A/ [Concomitant]
     Dosage: UNK, UNKNOWN
     Route: 065
  5. MIRALAX [Concomitant]
     Dosage: UNK, EACH EVENING
     Route: 065
  6. AZOPT [Concomitant]
     Dosage: UNK, UNKNOWN
     Route: 065
  7. IMURAN [Concomitant]
  8. FORTEO [Suspect]
     Dosage: 20 UG, QD
     Route: 058
     Dates: end: 20110601
  9. LEXAPRO [Concomitant]
     Dosage: UNK, UNKNOWN
     Route: 065
  10. FORTEO [Suspect]
     Dosage: 20 UG, QD
     Route: 058
     Dates: end: 20110318
  11. FOLIC ACID [Concomitant]
     Dosage: UNK, UNKNOWN
     Route: 065
  12. ALBUTEROL [Concomitant]
     Dosage: UNK, EVERY 4 HRS
     Route: 065
     Dates: start: 20100101
  13. FORTEO [Suspect]
     Indication: OSTEOPOROSIS
     Dosage: 20 UG, DAILY (1/D)
     Route: 058
     Dates: start: 20100611, end: 20101014
  14. PREDNISONE [Concomitant]
     Dosage: 7 MG, UNKNOWN
     Route: 065
  15. PREDNISONE [Concomitant]
     Dosage: 10 MG, UNKNOWN
     Route: 065
  16. XALATAN [Concomitant]
     Dosage: UNK, UNKNOWN
     Route: 065
  17. FORTEO [Suspect]
     Dosage: 20 UG, DAILY (1/D)
     Route: 058
  18. FORTEO [Suspect]
     Dosage: 20 UG, QD
     Route: 058
  19. PREDNISONE [Concomitant]
     Dosage: 8 MG, UNKNOWN
     Route: 065
  20. PROTONIX [Concomitant]
     Indication: GASTRIC DISORDER
     Dosage: UNK, EACH MORNING
     Route: 065
  21. VITAMIN C [Concomitant]
     Dosage: UNK, UNKNOWN
     Route: 065
  22. XANAX [Concomitant]
     Dosage: UNK, UNKNOWN
     Route: 065
  23. FISH OIL [Concomitant]
     Dosage: UNK, UNKNOWN
     Route: 065
  24. ZITHROMAX [Concomitant]
     Dosage: UNK, UNKNOWN
     Route: 065
     Dates: start: 20100901
  25. PREDNISONE [Concomitant]
     Dosage: 30 MG, UNKNOWN
     Route: 065
     Dates: start: 20100901

REACTIONS (34)
  - PULMONARY EMBOLISM [None]
  - BACTERIAL INFECTION [None]
  - FATIGUE [None]
  - NERVOUSNESS [None]
  - SINUSITIS [None]
  - POST PROCEDURAL HAEMORRHAGE [None]
  - PAIN [None]
  - THROMBOSIS [None]
  - MYALGIA [None]
  - PAIN IN EXTREMITY [None]
  - INJECTION SITE HAEMORRHAGE [None]
  - OROPHARYNGEAL PAIN [None]
  - PHARYNGITIS [None]
  - COUGH [None]
  - ABNORMAL SENSATION IN EYE [None]
  - THORACIC VERTEBRAL FRACTURE [None]
  - VOMITING [None]
  - ARTHRALGIA [None]
  - PYREXIA [None]
  - INTENTIONAL DRUG MISUSE [None]
  - FRACTURED SACRUM [None]
  - WEGENER'S GRANULOMATOSIS [None]
  - DYSKINESIA [None]
  - MUSCULOSKELETAL PAIN [None]
  - BALANCE DISORDER [None]
  - INJECTION SITE ERYTHEMA [None]
  - INJECTION SITE PAIN [None]
  - MALAISE [None]
  - NECK PAIN [None]
  - MEMORY IMPAIRMENT [None]
  - WAGNER'S DISEASE [None]
  - DYSPNOEA [None]
  - INJECTION SITE RASH [None]
  - RASH [None]
